FAERS Safety Report 4694152-6 (Version None)
Quarter: 2005Q2

REPORT INFORMATION
  Report Type: 
  Country: None (occurrence: None)
  Receive Date: 20050616
  Receipt Date: 20050616
  Transmission Date: 20051028
  Serious: Yes (Death)
  Sender: FDA-Public Use
  Company Number: None

PATIENT
  Age: 22 Year
  Sex: Male
  Weight: 49.2 kg

DRUGS (10)
  1. ETANERCEPT [Suspect]
     Indication: GRAFT VERSUS HOST DISEASE
     Dosage: 25 MG 2 X /WEEK SQ
     Route: 058
     Dates: start: 20050304, end: 20050503
  2. MEDROL [Concomitant]
  3. ACTIGALL [Concomitant]
  4. VORICONIZOLE [Concomitant]
  5. TACROLIMUS [Concomitant]
  6. PENTAMIDINE [Concomitant]
  7. PROTONIX [Concomitant]
  8. OXYCODONE HCL [Concomitant]
  9. OXYCONTIN [Concomitant]
  10. ISRADIPINE [Concomitant]

REACTIONS (12)
  - ABDOMINAL PAIN [None]
  - ASCITES [None]
  - COMPUTERISED TOMOGRAM ABNORMAL [None]
  - DIALYSIS [None]
  - DIARRHOEA [None]
  - GASTROINTESTINAL DISORDER [None]
  - GRAFT VERSUS HOST DISEASE [None]
  - RENAL FAILURE [None]
  - RESPIRATORY DISTRESS [None]
  - RESPIRATORY FAILURE [None]
  - STAPHYLOCOCCAL BACTERAEMIA [None]
  - WEIGHT DECREASED [None]
